FAERS Safety Report 24207866 (Version 2)
Quarter: 2024Q3

REPORT INFORMATION
  Report Type: Spontaneous
  Country: IT (occurrence: IT)
  Receive Date: 20240814
  Receipt Date: 20240823
  Transmission Date: 20241016
  Serious: Yes (Hospitalization)
  Sender: AUROBINDO
  Company Number: IT-MLMSERVICE-20240731-PI141906-00275-2

PATIENT
  Sex: Male

DRUGS (13)
  1. QUETIAPINE [Suspect]
     Active Substance: QUETIAPINE
     Indication: Aggression
     Dosage: 400 MILLIGRAM, ONCE A DAY (RP/DAY)
     Route: 065
  2. QUETIAPINE [Suspect]
     Active Substance: QUETIAPINE
     Dosage: 800 MILLIGRAM, ONCE A DAY (INCREASED UP TO 800 MG)
     Route: 065
  3. VALPROATE SODIUM [Suspect]
     Active Substance: VALPROATE SODIUM
     Indication: Aggression
     Dosage: 500 MILLIGRAM, ONCE A DAY
     Route: 065
  4. VALPROATE SODIUM [Suspect]
     Active Substance: VALPROATE SODIUM
     Dosage: 2000 MILLIGRAM, ONCE A DAY (INCREASED UP TO 2000 MG)
     Route: 065
  5. CLOZAPINE [Suspect]
     Active Substance: CLOZAPINE
     Indication: Behaviour disorder
     Dosage: 25 MILLIGRAM, ONCE A DAY
     Route: 065
  6. CLOZAPINE [Suspect]
     Active Substance: CLOZAPINE
     Dosage: 225 MILLIGRAM, ONCE A DAY IN 7 WEEKS
     Route: 065
  7. CLOZAPINE [Suspect]
     Active Substance: CLOZAPINE
     Dosage: 250 MILLIGRAM, ONCE A DAY AT WEEK 17
     Route: 065
  8. CLOZAPINE [Suspect]
     Active Substance: CLOZAPINE
     Dosage: 275 MILLIGRAM, ONCE A DAY AT WEEK 23
     Route: 065
  9. CLOZAPINE [Suspect]
     Active Substance: CLOZAPINE
     Dosage: 225 MILLIGRAM  AFTER 10 WEEK
     Route: 065
  10. ZUCLOPENTHIXOL DECANOATE [Suspect]
     Active Substance: ZUCLOPENTHIXOL DECANOATE
     Indication: Aggression
     Dosage: 200 MILLIGRAM EVERY MONTH
     Route: 065
  11. ZUCLOPENTHIXOL DECANOATE [Suspect]
     Active Substance: ZUCLOPENTHIXOL DECANOATE
     Dosage: 800 MILLIGRAM (INCREASED UP TO 800 MG)
  12. CARBAMAZEPINE [Concomitant]
     Active Substance: CARBAMAZEPINE
     Indication: Product used for unknown indication
     Dosage: UNK
     Route: 065
  13. METFORMIN [Concomitant]
     Active Substance: METFORMIN HYDROCHLORIDE
     Indication: Product used for unknown indication
     Dosage: UNK DOSE REDUCED
     Route: 065

REACTIONS (5)
  - Extrapyramidal disorder [Recovered/Resolved]
  - Sedation [Recovered/Resolved]
  - Drug ineffective [Unknown]
  - Salivary hypersecretion [Unknown]
  - Off label use [Unknown]

NARRATIVE: CASE EVENT DATE: 20210101
